FAERS Safety Report 14292103 (Version 3)
Quarter: 2018Q1

REPORT INFORMATION
  Report Type: Spontaneous
  Country: DE (occurrence: DE)
  Receive Date: 20171215
  Receipt Date: 20180129
  Transmission Date: 20180509
  Serious: Yes (Hospitalization, Other)
  Sender: FDA-Public Use
  Company Number: DE-SA-2017SA245023

PATIENT
  Age: 79 Year
  Sex: Female

DRUGS (3)
  1. PREDNISOLONE. [Suspect]
     Active Substance: PREDNISOLONE
     Indication: RHEUMATOID ARTHRITIS
     Route: 048
  2. LEFLUNOMIDE. [Suspect]
     Active Substance: LEFLUNOMIDE
     Indication: RHEUMATOID ARTHRITIS
     Route: 048
  3. INTERFERON ALFA-2B [Suspect]
     Active Substance: INTERFERON ALFA-2B
     Indication: MALIGNANT NEOPLASM OF CONJUNCTIVA
     Route: 065

REACTIONS (7)
  - Ulcerative keratitis [Recovered/Resolved with Sequelae]
  - Malignant neoplasm of conjunctiva [Recovered/Resolved with Sequelae]
  - Hypopyon [Recovered/Resolved with Sequelae]
  - Corneal scar [Unknown]
  - Metastases to lymph nodes [Recovered/Resolved with Sequelae]
  - Ectropion [Recovered/Resolved with Sequelae]
  - Visual acuity reduced [Recovered/Resolved with Sequelae]
